FAERS Safety Report 24039059 (Version 1)
Quarter: 2024Q3

REPORT INFORMATION
  Report Type: Spontaneous
  Country: US (occurrence: US)
  Receive Date: 20240702
  Receipt Date: 20240702
  Transmission Date: 20241016
  Serious: Yes (Hospitalization, Other)
  Sender: CELLTRION
  Company Number: US-CELLTRION INC.-2024US015736

PATIENT

DRUGS (1)
  1. RITUXIMAB [Suspect]
     Active Substance: RITUXIMAB
     Indication: Rheumatoid arthritis
     Dosage: SHE RECEIVED HER LAST DOSE OF RITUXIMAB THREE MONTHS BEFORE PRESENTATION

REACTIONS (4)
  - Organising pneumonia [Recovering/Resolving]
  - Pneumonia staphylococcal [Recovered/Resolved]
  - Enterococcal infection [Recovering/Resolving]
  - COVID-19 [Recovering/Resolving]
